FAERS Safety Report 15591394 (Version 1)
Quarter: 2018Q4

REPORT INFORMATION
  Report Type: Spontaneous
  Country: US (occurrence: US)
  Receive Date: 20181106
  Receipt Date: 20181106
  Transmission Date: 20190205
  Serious: No
  Sender: FDA-Public Use
  Company Number: US-PFIZER INC-2018076346

PATIENT
  Age: 5 Year
  Sex: Male
  Weight: 14 kg

DRUGS (1)
  1. GENOTROPIN [Suspect]
     Active Substance: SOMATROPIN
     Indication: GROWTH HORMONE DEFICIENCY
     Dosage: 0.6 MG, DAILY
     Dates: start: 201712

REACTIONS (2)
  - Product dose omission [Not Recovered/Not Resolved]
  - Abdominal pain upper [Unknown]
